FAERS Safety Report 5382526-X (Version None)
Quarter: 2007Q2

REPORT INFORMATION
  Report Type: 
  Country: None (occurrence: None)
  Receive Date: 20070629
  Receipt Date: 20070313
  Transmission Date: 20071010
  Serious: Yes (Hospitalization, Other)
  Sender: FDA-Public Use
  Company Number: US200701006372

PATIENT
  Sex: Male

DRUGS (3)
  1. HUMALOG [Suspect]
     Indication: DIABETES MELLITUS INSULIN-DEPENDENT
     Dates: start: 19960101
  2. HUMALOG PEN [Concomitant]
  3. LANTUS [Concomitant]

REACTIONS (3)
  - CATARACT [None]
  - VASCULAR BYPASS GRAFT [None]
  - VISUAL ACUITY REDUCED [None]
